FAERS Safety Report 10243383 (Version 1)
Quarter: 2014Q2

REPORT INFORMATION
  Report Type: Spontaneous
  Country: US (occurrence: None)
  Receive Date: 20140616
  Receipt Date: 20140616
  Transmission Date: 20141212
  Serious: Yes (Hospitalization)
  Sender: FDA-Public Use
  Company Number: US-H14001-14-00015

PATIENT
  Age: 67 Year
  Sex: Male

DRUGS (3)
  1. AMIODARONE (AMIODARONE) (UNKNOWN) [Suspect]
     Indication: ATRIAL FLUTTER
  2. FUROSEMIDE (FUROSEMIDE) (UNKNOWN) (FUROSEMIDE) [Concomitant]
  3. DABIGATRAN (DABIGATRAN) (UNKNOWN) (DABIGATRAN) [Concomitant]

REACTIONS (6)
  - Hyponatraemia [None]
  - Hypothyroidism [None]
  - Dizziness [None]
  - Asthenia [None]
  - Mental status changes [None]
  - Blood pressure increased [None]
